FAERS Safety Report 15372154 (Version 1)
Quarter: 2018Q3

REPORT INFORMATION
  Report Type: Spontaneous
  Country: DE (occurrence: DE)
  Receive Date: 20180911
  Receipt Date: 20180911
  Transmission Date: 20181010
  Serious: Yes (Other)
  Sender: FDA-Public Use
  Company Number: DE-BAUSCH-BL-2018-025032

PATIENT
  Sex: Male
  Weight: 145 kg

DRUGS (1)
  1. ZYCLARA [Suspect]
     Active Substance: IMIQUIMOD
     Indication: PROPHYLAXIS
     Dosage: 14 DAYS TREATMENT ? 14 DAYS TREATMENT BREAK ? 14 DAYS TREATMENT
     Route: 061

REACTIONS (3)
  - Aggression [Not Recovered/Not Resolved]
  - Feelings of worthlessness [Not Recovered/Not Resolved]
  - Depression [Not Recovered/Not Resolved]
